FAERS Safety Report 9522902 (Version 4)
Quarter: 2013Q4

REPORT INFORMATION
  Report Type: Spontaneous
  Country: JP (occurrence: JP)
  Receive Date: 20130913
  Receipt Date: 20131218
  Transmission Date: 20140711
  Serious: Yes (Death, Other)
  Sender: FDA-Public Use
  Company Number: JP-MPIJNJ-2013JNJ000281

PATIENT
  Sex: 0

DRUGS (6)
  1. VELCADE [Suspect]
     Indication: PLASMA CELL MYELOMA
     Dosage: 1 MG/M2, UNK
     Route: 058
     Dates: start: 20130321, end: 20130829
  2. LENADEX [Concomitant]
     Indication: PLASMA CELL MYELOMA
     Dosage: 20 MG, UNK
     Route: 048
     Dates: start: 20130321, end: 20130829
  3. TAKEPRON [Concomitant]
     Indication: PLASMA CELL MYELOMA
     Dosage: 15 MG, UNK
     Route: 048
     Dates: start: 20130205, end: 20130904
  4. NAUZELIN [Concomitant]
     Indication: PLASMA CELL MYELOMA
     Dosage: 10 MG, UNK
     Route: 048
     Dates: start: 20130205, end: 20130904
  5. RETICOLAN [Concomitant]
     Indication: PLASMA CELL MYELOMA
     Dosage: 250 MG, UNK
     Route: 048
     Dates: start: 20130205, end: 20130904
  6. MIYA BM [Concomitant]
     Indication: PLASMA CELL MYELOMA
     Dosage: 2 G, UNK
     Route: 048
     Dates: start: 20130205, end: 20130904

REACTIONS (3)
  - Cerebral infarction [Fatal]
  - Sepsis [Fatal]
  - Plasma cell myeloma [Fatal]
